FAERS Safety Report 8901687 (Version 1)
Quarter: 2012Q4

REPORT INFORMATION
  Report Type: Spontaneous
  Country: FR (occurrence: None)
  Receive Date: 20121101
  Receipt Date: 20121101
  Transmission Date: 20130627
  Serious: Yes (Other)
  Sender: FDA-Public Use
  Company Number: FR-1194869

PATIENT
  Age: 60 Year
  Sex: Male

DRUGS (1)
  1. BETOPTIC S [Suspect]
     Dosage: OU
     Route: 047
     Dates: start: 20120906, end: 20120907

REACTIONS (3)
  - Eye irritation [None]
  - Photophobia [None]
  - Ulcerative keratitis [None]
